FAERS Safety Report 9486239 (Version 1)
Quarter: 2013Q3

REPORT INFORMATION
  Report Type: Spontaneous
  Country: JP (occurrence: JP)
  Receive Date: 20130829
  Receipt Date: 20130829
  Transmission Date: 20140515
  Serious: Yes (Hospitalization, Other)
  Sender: FDA-Public Use
  Company Number: JP-PFIZER INC-2013248557

PATIENT
  Age: 72 Year
  Sex: Female

DRUGS (6)
  1. LYRICA [Suspect]
     Indication: CHEST PAIN
     Dosage: 75 MG, 1X/DAY
     Route: 048
     Dates: start: 20120919, end: 201304
  2. LYRICA [Suspect]
     Dosage: 150 MG, 1X/DAY
     Route: 048
     Dates: start: 201304, end: 201306
  3. LASIX [Concomitant]
  4. RHEUMATREX [Concomitant]
  5. WINTERMIN [Concomitant]
  6. SILECE [Concomitant]

REACTIONS (4)
  - Femur fracture [Recovered/Resolved]
  - Fall [Recovered/Resolved]
  - Dementia [Unknown]
  - Somnolence [Unknown]
